FAERS Safety Report 8033397-4 (Version None)
Quarter: 2012Q1

REPORT INFORMATION
  Report Type: 
  Country: None (occurrence: None)
  Receive Date: 20120110
  Receipt Date: 20120105
  Transmission Date: 20120608
  Serious: Yes (Death, Other)
  Sender: FDA-Public Use
  Company Number: PHHY2012MX001422

PATIENT
  Age: 77 Year
  Sex: Male

DRUGS (5)
  1. VITAMIN B COMPLEX CAP [Concomitant]
     Dosage: UNK UKN, UNK
  2. DIOVAN HCT [Suspect]
     Indication: HYPERTENSION
     Dosage: 1 DF (160/25), DAILY
     Dates: start: 20090101
  3. BISOPROLOL FUMARATE [Concomitant]
     Dosage: UNK UKN, UNK
  4. LOSARTAN POTASSIUM [Concomitant]
     Dosage: UNK UKN, UNK
  5. METFORMIN HCL [Concomitant]
     Dosage: UNK UKN, UNK

REACTIONS (2)
  - RESPIRATORY ARREST [None]
  - DEATH [None]
